FAERS Safety Report 25613643 (Version 1)
Quarter: 2025Q3

REPORT INFORMATION
  Report Type: Spontaneous
  Country: US (occurrence: US)
  Receive Date: 20250728
  Receipt Date: 20250728
  Transmission Date: 20251020
  Serious: No
  Sender: MYLAN
  Company Number: US-MYLANLABS-2025M1061114

PATIENT
  Sex: Female

DRUGS (1)
  1. LATANOPROST [Suspect]
     Active Substance: LATANOPROST
     Indication: Glaucoma
     Dosage: 1 GTT DROPS, PM (1 DROP IN BOTH EYES AT NIGHT)

REACTIONS (4)
  - Circumstance or information capable of leading to medication error [Unknown]
  - Product leakage [Unknown]
  - Device delivery system issue [Unknown]
  - Product design issue [Unknown]

NARRATIVE: CASE EVENT DATE: 20250101
